FAERS Safety Report 4338190-1 (Version None)
Quarter: 2004Q2

REPORT INFORMATION
  Report Type: 
  Country: None (occurrence: None)
  Receive Date: 20040414
  Receipt Date: 20031128
  Transmission Date: 20050107
  Serious: Yes (Life-Threatening)
  Sender: FDA-Public Use
  Company Number: 200311408JP

PATIENT
  Age: 53 Year
  Sex: Female
  Weight: 58 kg

DRUGS (2)
  1. TAXOTERE [Suspect]
     Indication: ASCITES
     Route: 041
     Dates: start: 20031127, end: 20031127
  2. CARBOPLATIN [Concomitant]
     Indication: ASCITES
     Route: 034
     Dates: start: 20031127, end: 20031127

REACTIONS (7)
  - BLOOD ALKALINE PHOSPHATASE INCREASED [None]
  - BLOOD CALCIUM DECREASED [None]
  - HAEMATOCRIT DECREASED [None]
  - HAEMOGLOBIN DECREASED [None]
  - MUSCLE CRAMP [None]
  - MUSCLE RIGIDITY [None]
  - PARAESTHESIA [None]
